FAERS Safety Report 14149188 (Version 3)
Quarter: 2018Q2

REPORT INFORMATION
  Report Type: Spontaneous
  Country: US (occurrence: US)
  Receive Date: 20171101
  Receipt Date: 20180607
  Transmission Date: 20180711
  Serious: Yes (Other)
  Sender: FDA-Public Use
  Company Number: US-SUN PHARMACEUTICAL INDUSTRIES LTD-2017US-153730

PATIENT
  Age: 4 Month
  Sex: Female

DRUGS (12)
  1. VINCRISTINE [Suspect]
     Active Substance: VINCRISTINE
     Indication: METASTATIC CARCINOID TUMOUR
     Dosage: 1.5 MG/M2, 2 CYCLICAL
     Route: 065
     Dates: start: 201303, end: 201307
  2. CARBOPLATIN. [Suspect]
     Active Substance: CARBOPLATIN
     Indication: METASTASES TO MENINGES
     Dosage: 560 MG/M2, 2 CYCLICAL
     Route: 065
     Dates: start: 201303, end: 201307
  3. VINCRISTINE [Suspect]
     Active Substance: VINCRISTINE
     Indication: CHOROID PLEXUS CARCINOMA
     Dosage: 1.5 MG/M2, 2 CYCLICAL
     Route: 065
     Dates: start: 201303, end: 201307
  4. CARBOPLATIN. [Suspect]
     Active Substance: CARBOPLATIN
     Indication: CHOROID PLEXUS CARCINOMA
     Dosage: 560 MG/M2, 2 CYCLICAL
     Route: 065
     Dates: start: 201303, end: 201307
  5. IFOSFAMIDE. [Suspect]
     Active Substance: IFOSFAMIDE
     Indication: METASTATIC CARCINOID TUMOUR
     Dosage: 1800 MG/M2, 2 CYCLICAL, 5 DAYS
     Route: 065
     Dates: start: 201303, end: 201307
  6. IFOSFAMIDE. [Suspect]
     Active Substance: IFOSFAMIDE
     Indication: CHOROID PLEXUS CARCINOMA
     Dosage: 1800 MG/M2, 2 CYCLICAL, 5 DAYS
     Route: 065
     Dates: start: 201303, end: 201307
  7. ETOPOSIDE. [Suspect]
     Active Substance: ETOPOSIDE
     Indication: METASTASES TO MENINGES
     Dosage: 100 MG/M2, 2 CYCLICAL, 5 DAYS
     Route: 065
     Dates: start: 201303, end: 201307
  8. ETOPOSIDE. [Suspect]
     Active Substance: ETOPOSIDE
     Indication: CHOROID PLEXUS CARCINOMA
     Dosage: 100 MG/M2, 2 CYCLICAL, 5 DAYS
     Route: 065
     Dates: start: 201303, end: 201307
  9. VINCRISTINE [Suspect]
     Active Substance: VINCRISTINE
     Indication: METASTASES TO MENINGES
     Dosage: 1.5 MG/M2, 2 CYCLICAL
     Route: 065
     Dates: start: 201303, end: 201307
  10. IFOSFAMIDE. [Suspect]
     Active Substance: IFOSFAMIDE
     Indication: METASTASES TO MENINGES
     Dosage: 1800 MG/M2, 2 CYCLICAL, 5 DAYS
     Route: 065
     Dates: start: 201303, end: 201307
  11. CARBOPLATIN. [Suspect]
     Active Substance: CARBOPLATIN
     Indication: METASTATIC CARCINOID TUMOUR
     Dosage: 560 MG/M2, 2 CYCLICAL
     Route: 065
     Dates: start: 201303, end: 201307
  12. ETOPOSIDE. [Suspect]
     Active Substance: ETOPOSIDE
     Indication: METASTATIC CARCINOID TUMOUR
     Dosage: 100 MG/M2, 2 CYCLICAL, 5 DAYS
     Route: 065
     Dates: start: 201303, end: 201307

REACTIONS (6)
  - Vomiting [Unknown]
  - Abscess [Unknown]
  - Nausea [Unknown]
  - Full blood count decreased [Unknown]
  - Haematotoxicity [Unknown]
  - Decreased appetite [Unknown]

NARRATIVE: CASE EVENT DATE: 2013
